FAERS Safety Report 9349631 (Version 1)
Quarter: 2013Q2

REPORT INFORMATION
  Report Type: Spontaneous
  Country: FR (occurrence: FR)
  Receive Date: 20130614
  Receipt Date: 20130614
  Transmission Date: 20140414
  Serious: Yes (Life-Threatening, Hospitalization, Other)
  Sender: FDA-Public Use
  Company Number: FR-ELI_LILLY_AND_COMPANY-FR201306002878

PATIENT
  Age: 59 Year
  Sex: Male

DRUGS (1)
  1. GEMZAR [Suspect]
     Dosage: 0.149 DF, WEEKLY (1/W)
     Route: 042
     Dates: start: 20111209, end: 20120620

REACTIONS (7)
  - Thrombotic microangiopathy [Not Recovered/Not Resolved]
  - Embolism [Unknown]
  - Renal failure [Not Recovered/Not Resolved]
  - Thrombocytopenia [Not Recovered/Not Resolved]
  - Ascites [Unknown]
  - Blood lactate dehydrogenase increased [Unknown]
  - Haptoglobin decreased [Not Recovered/Not Resolved]
